FAERS Safety Report 17235772 (Version 1)
Quarter: 2020Q1

REPORT INFORMATION
  Report Type: Spontaneous
  Country: GB (occurrence: GB)
  Receive Date: 20200106
  Receipt Date: 20200106
  Transmission Date: 20200409
  Serious: Yes (Other)
  Sender: FDA-Public Use
  Company Number: GB-MICRO LABS LIMITED-ML2020-00004

PATIENT
  Age: 76 Year
  Sex: Male
  Weight: 100 kg

DRUGS (7)
  1. SIMVASTATIN. [Suspect]
     Active Substance: SIMVASTATIN
  2. HYLO-FORTE [Concomitant]
     Active Substance: HYALURONATE SODIUM
  3. CLOPIDOGREL [Concomitant]
     Active Substance: CLOPIDOGREL BISULFATE
     Indication: TRANSIENT ISCHAEMIC ATTACK
     Dates: start: 201611
  4. ATORVASTATIN CALCIUM. [Suspect]
     Active Substance: ATORVASTATIN CALCIUM
     Indication: BLOOD CHOLESTEROL
     Dosage: AT APPROXIMATELY 6PM
     Route: 048
  5. RANITIDINE. [Concomitant]
     Active Substance: RANITIDINE
     Dosage: OCCASIONAL
  6. ALLOPURINOL. [Suspect]
     Active Substance: ALLOPURINOL
     Indication: GOUT
     Dosage: INITIALLY 100MG THEN INCREASED TO 200MG.
  7. LANSOPRAZOLE. [Concomitant]
     Active Substance: LANSOPRAZOLE

REACTIONS (9)
  - Facial paralysis [Unknown]
  - Lip pain [Not Recovered/Not Resolved]
  - Hypoaesthesia oral [Not Recovered/Not Resolved]
  - Facial paresis [Unknown]
  - Oral herpes [Unknown]
  - Muscle discomfort [Unknown]
  - Lip disorder [Recovering/Resolving]
  - Dizziness [Unknown]
  - Actinic cheilitis [Unknown]

NARRATIVE: CASE EVENT DATE: 20191126
